FAERS Safety Report 11418424 (Version 1)
Quarter: 2015Q3

REPORT INFORMATION
  Report Type: Spontaneous
  Country: US (occurrence: US)
  Receive Date: 20150826
  Receipt Date: 20150826
  Transmission Date: 20151125
  Serious: No
  Sender: FDA-Public Use
  Company Number: US-NOVEN PHARMACEUTICALS, INC.-US2015000355

PATIENT
  Age: 50 Year
  Sex: Female

DRUGS (3)
  1. MINIVELLE [Suspect]
     Active Substance: ESTRADIOL
     Indication: NIGHT SWEATS
  2. MINIVELLE [Suspect]
     Active Substance: ESTRADIOL
     Indication: HOT FLUSH
     Dosage: 0.1 MG WITH  AN ADDITIIONAL 1/8 AND 1/16TH PATCH, 2/WK
     Route: 062
     Dates: start: 2009
  3. PROGESTERONE. [Concomitant]
     Active Substance: PROGESTERONE
     Indication: PRODUCT USED FOR UNKNOWN INDICATION
     Dosage: 0.18 UNK, UNKNOWN
     Route: 065

REACTIONS (6)
  - Product quality issue [Unknown]
  - No adverse event [Unknown]
  - Product adhesion issue [Unknown]
  - Drug prescribing error [Unknown]
  - Wrong technique in product usage process [Unknown]
  - Overdose [Unknown]
